FAERS Safety Report 17891949 (Version 1)
Quarter: 2020Q2

REPORT INFORMATION
  Report Type: Spontaneous
  Country: AR (occurrence: AR)
  Receive Date: 20200612
  Receipt Date: 20200612
  Transmission Date: 20200714
  Serious: Yes (Other)
  Sender: FDA-Public Use
  Company Number: AR-PFIZER INC-2020217905

PATIENT
  Age: 75 Year
  Sex: Female

DRUGS (2)
  1. IBRANCE [Suspect]
     Active Substance: PALBOCICLIB
     Indication: BREAST CANCER METASTATIC
     Dosage: 100 MG, CYCLIC
     Dates: start: 20190626, end: 2019
  2. LETROZOL [Concomitant]
     Active Substance: LETROZOLE

REACTIONS (2)
  - Decreased immune responsiveness [Unknown]
  - Anaemia [Unknown]

NARRATIVE: CASE EVENT DATE: 2019
